FAERS Safety Report 20323861 (Version 1)
Quarter: 2022Q1

REPORT INFORMATION
  Report Type: Spontaneous
  Country: US (occurrence: US)
  Receive Date: 20220111
  Receipt Date: 20220111
  Transmission Date: 20220423
  Serious: No
  Sender: FDA-Public Use
  Company Number: US-PFIZER INC-202101259658

PATIENT
  Age: 90 Year
  Sex: Female
  Weight: 70.31 kg

DRUGS (2)
  1. VENLAFAXINE HCL [Interacting]
     Active Substance: VENLAFAXINE HYDROCHLORIDE
     Indication: Depression
     Dosage: 185 MG, DAILY (150MG AND ADDITIONAL 35 MG)
     Dates: start: 2014
  2. OMEPRAZOLE [Interacting]
     Active Substance: OMEPRAZOLE
     Indication: Gastrooesophageal reflux disease
     Dosage: 20 MG, 1X/DAY
     Route: 048
     Dates: start: 20201031

REACTIONS (10)
  - Drug ineffective [Unknown]
  - Drug interaction [Unknown]
  - Fatigue [Unknown]
  - Depressed mood [Unknown]
  - Asthenia [Unknown]
  - Feeling abnormal [Unknown]
  - Ulcer [Unknown]
  - Nausea [Recovering/Resolving]
  - Illness [Unknown]
  - Respiratory disorder [Unknown]

NARRATIVE: CASE EVENT DATE: 20210101
